FAERS Safety Report 9787567 (Version 1)
Quarter: 2013Q4

REPORT INFORMATION
  Report Type: Spontaneous
  Country: GB (occurrence: None)
  Receive Date: 20131224
  Receipt Date: 20131224
  Transmission Date: 20140711
  Serious: Yes (Disabling)
  Sender: FDA-Public Use
  Company Number: AUR-APL-2013-10564

PATIENT
  Age: 54 Year
  Sex: Female
  Weight: 114 kg

DRUGS (4)
  1. FLUOXETINE [Suspect]
     Indication: DEPRESSION
     Route: 048
     Dates: start: 20070430, end: 201205
  2. DICLOFENAC (DICLOFENAC) [Concomitant]
  3. SALBUTAMOL (SALBUTAMOL) [Concomitant]
  4. SERETIDE (SERETIDE) [Concomitant]

REACTIONS (3)
  - Pain [None]
  - Torticollis [None]
  - Muscle spasms [None]
